FAERS Safety Report 7753601-7 (Version None)
Quarter: 2011Q3

REPORT INFORMATION
  Report Type: 
  Country: None (occurrence: None)
  Receive Date: 20110915
  Receipt Date: 20110907
  Transmission Date: 20111222
  Serious: Yes (Death)
  Sender: FDA-Public Use
  Company Number: US-GLAXOSMITHKLINE-A0939944A

PATIENT
  Age: 91 Year
  Sex: Male

DRUGS (8)
  1. ISORDIL [Concomitant]
     Dosage: 90MG PER DAY
     Route: 048
  2. METOPROLOL TARTRATE [Concomitant]
     Dosage: 25MG TWICE PER DAY
     Route: 048
  3. PROCARDIA [Concomitant]
     Dosage: 90MG PER DAY
     Route: 048
  4. PREDNISONE [Concomitant]
     Dosage: 60MG PER DAY
     Route: 048
  5. PROMACTA [Suspect]
     Indication: IDIOPATHIC THROMBOCYTOPENIC PURPURA
     Dosage: 75MG PER DAY
     Dates: start: 20100811, end: 20110414
  6. SIMVASTATIN [Concomitant]
     Dosage: 10MG PER DAY
     Route: 048
  7. CORTICOSTEROIDS [Concomitant]
     Indication: IDIOPATHIC THROMBOCYTOPENIC PURPURA
     Dates: start: 20091229
  8. ZANTAC [Concomitant]
     Dosage: 150MG PER DAY
     Route: 048

REACTIONS (5)
  - GASTRIC HAEMORRHAGE [None]
  - CARDIAC ARREST [None]
  - IDIOPATHIC THROMBOCYTOPENIC PURPURA [None]
  - DRUG INEFFECTIVE [None]
  - PLATELET COUNT DECREASED [None]
